FAERS Safety Report 6326223-2 (Version None)
Quarter: 2009Q3

REPORT INFORMATION
  Report Type: 
  Country: None (occurrence: None)
  Receive Date: 20090820
  Receipt Date: 20090807
  Transmission Date: 20100115
  Serious: Yes (Death)
  Sender: FDA-Public Use
  Company Number: 8047809

PATIENT
  Age: 24 Year
  Sex: Male
  Weight: 77.5 kg

DRUGS (8)
  1. LORTAB [Suspect]
     Indication: BACK PAIN
     Dosage: PO
     Route: 048
  2. OPANA ER [Suspect]
     Indication: BACK PAIN
     Dosage: 10 MG 2/D PO
     Route: 048
     Dates: start: 20081229
  3. OPANA ER [Suspect]
     Indication: BACK PAIN
     Dosage: 20 MG 2/D PO
     Route: 048
  4. RESTORIL [Suspect]
     Dosage: 15 MG
  5. VALIUM [Suspect]
     Dosage: 10 MG
  6. PROMETHAZINE [Suspect]
  7. VERAPAMIL [Concomitant]
  8. RESTORIL [Concomitant]

REACTIONS (10)
  - ARTERIOSCLEROSIS [None]
  - GENERALISED OEDEMA [None]
  - HEPATIC CONGESTION [None]
  - LIVIDITY [None]
  - MULTI-ORGAN DISORDER [None]
  - MUSCLE RIGIDITY [None]
  - PANCREATIC HAEMORRHAGE [None]
  - PULMONARY CONGESTION [None]
  - SPLEEN CONGESTION [None]
  - VISCERAL CONGESTION [None]
